FAERS Safety Report 15540085 (Version 7)
Quarter: 2019Q2

REPORT INFORMATION
  Report Type: Spontaneous
  Country: JP (occurrence: JP)
  Receive Date: 20181023
  Receipt Date: 20190502
  Transmission Date: 20190711
  Serious: Yes (Other)
  Sender: FDA-Public Use
  Company Number: JP-AMGEN-JPNSP2018147709

PATIENT
  Age: 86 Year
  Sex: Male

DRUGS (39)
  1. FEBURIC [Concomitant]
     Active Substance: FEBUXOSTAT
     Dosage: 20 MG
     Route: 048
     Dates: end: 20180727
  2. SOLACET F [Concomitant]
     Active Substance: CALCIUM CHLORIDE\POTASSIUM CHLORIDE\SODIUM ACETATE\SODIUM CHLORIDE
     Dosage: 500 MILLILITER
     Route: 042
     Dates: end: 20180723
  3. CALONAL [Concomitant]
     Active Substance: ACETAMINOPHEN
     Dosage: 400 MG, PRN, WHEN HAVING PAIN OR FEVER
     Route: 048
  4. TELMISARTAN. [Concomitant]
     Active Substance: TELMISARTAN
     Dosage: 80 MILLIGRAM
     Route: 048
     Dates: end: 20170727
  5. TRAZENTA [Concomitant]
     Active Substance: LINAGLIPTIN
     Dosage: 5 MILLIGRAM
     Route: 048
     Dates: start: 20181116, end: 20181206
  6. METHYCOBAL [Concomitant]
     Active Substance: METHYLCOBALAMIN
     Dosage: 500 UG, TID, AFTER BREAKFAST, LUNCH AND DINNER
     Route: 048
     Dates: start: 20181116, end: 20181206
  7. RABEPRAZOLE NA [Concomitant]
     Active Substance: RABEPRAZOLE SODIUM
     Dosage: 10 MG, QD, AFTER BREAKFAST
     Route: 048
     Dates: end: 20180727
  8. HERBESSER [Concomitant]
     Active Substance: DILTIAZEM HYDROCHLORIDE
     Dosage: 100 MG, QD,AFTER BREAKFAST
     Route: 048
     Dates: end: 20180727
  9. RABEPRAZOLE NA [Concomitant]
     Active Substance: RABEPRAZOLE SODIUM
     Dosage: 10 MG, QD, AFTER BREAKFAST
     Route: 048
     Dates: start: 20180803, end: 20181113
  10. ISOTONIC SODIUM CHLORIDE SOLUTION [Concomitant]
     Active Substance: SODIUM CHLORIDE
     Dosage: 200 ML
     Route: 042
     Dates: start: 20180718, end: 20180725
  11. MIRCERA [Concomitant]
     Active Substance: METHOXY POLYETHYLENE GLYCOL-EPOETIN BETA
     Dosage: 150 UG
     Route: 058
     Dates: start: 20181106, end: 20181106
  12. CILNIDIPINE [Concomitant]
     Active Substance: CILNIDIPINE
     Dosage: 10 MG, QD, AFTER BREAKFAST
     Route: 048
     Dates: end: 20180727
  13. TRAZENTA [Concomitant]
     Active Substance: LINAGLIPTIN
     Dosage: 5 MILLIGRAM
     Route: 048
     Dates: start: 20180803, end: 20181113
  14. FEBURIC [Concomitant]
     Active Substance: FEBUXOSTAT
     Dosage: 10 MG
     Route: 048
     Dates: start: 20180803, end: 20181113
  15. HERBESSER [Concomitant]
     Active Substance: DILTIAZEM HYDROCHLORIDE
     Dosage: 100 MG, QD,AFTER BREAKFAST
     Route: 048
     Dates: start: 20180803, end: 20181113
  16. RABEPRAZOLE NA [Concomitant]
     Active Substance: RABEPRAZOLE SODIUM
     Dosage: 10 MG, QD, AFTER BREAKFAST
     Route: 048
     Dates: start: 20181116, end: 20181206
  17. WARFARIN [Concomitant]
     Active Substance: WARFARIN
     Dosage: 3.5 MG, QD, AFTER DINNER
     Route: 048
     Dates: end: 20180727
  18. WARFARIN [Concomitant]
     Active Substance: WARFARIN
     Dosage: 3.5 MG, QD, AFTER DINNER
     Route: 048
     Dates: end: 20180804
  19. WARFARIN [Concomitant]
     Active Substance: WARFARIN
     Dosage: 3.5 MG, QD, AFTER DINNER
     Route: 048
     Dates: start: 20181116, end: 20181206
  20. NESP [Suspect]
     Active Substance: DARBEPOETIN ALFA
     Indication: PRODUCT USED FOR UNKNOWN INDICATION
     Dosage: UNK
     Route: 065
  21. CILNIDIPINE [Concomitant]
     Active Substance: CILNIDIPINE
     Dosage: 10 MG, BID, AFTER BREAKFAST AND DINNER
     Route: 048
     Dates: start: 20181116, end: 20181206
  22. HERBESSER [Concomitant]
     Active Substance: DILTIAZEM HYDROCHLORIDE
     Dosage: 100 MG, QD,AFTER BREAKFAST
     Route: 048
     Dates: start: 20181116, end: 20181206
  23. CILNIDIPINE [Concomitant]
     Active Substance: CILNIDIPINE
     Dosage: 10 MG, BID, AFTER BREAKFAST AND DINNER
     Route: 048
     Dates: start: 20180803, end: 20181113
  24. WARFARIN [Concomitant]
     Active Substance: WARFARIN
     Dosage: 3.5 MG, QD, AFTER DINNER
     Route: 048
     Dates: start: 20180803, end: 20180830
  25. WARFARIN [Concomitant]
     Active Substance: WARFARIN
     Dosage: 3.5 MG, QD, AFTER DINNER
     Route: 048
     Dates: start: 20180831, end: 20181108
  26. SULTAMUGIN [Concomitant]
     Dosage: 2 G
     Route: 042
     Dates: start: 20180718, end: 20180725
  27. ISOTONIC SODIUM CHLORIDE SOLUTION [Concomitant]
     Active Substance: SODIUM CHLORIDE
     Dosage: 100 ML
     Route: 042
     Dates: start: 20180726, end: 20180726
  28. CILNIDIPINE [Concomitant]
     Active Substance: CILNIDIPINE
     Dosage: 10 MG, QD, AFTER DINNER
     Route: 048
     Dates: start: 20180725, end: 20180727
  29. TELMISARTAN. [Concomitant]
     Active Substance: TELMISARTAN
     Dosage: 80 MILLIGRAM
     Route: 048
     Dates: start: 20180803, end: 20181113
  30. TELMISARTAN. [Concomitant]
     Active Substance: TELMISARTAN
     Dosage: 80 MILLIGRAM
     Route: 048
     Dates: start: 20181116, end: 20181206
  31. METHYCOBAL [Concomitant]
     Active Substance: METHYLCOBALAMIN
     Dosage: 500 UG, TID, AFTER BREAKFAST, LUNCH AND DINNER
     Route: 048
     Dates: end: 20180727
  32. WARFARIN [Concomitant]
     Active Substance: WARFARIN
     Dosage: 3.5 MG, QD, AFTER DINNER
     Route: 048
     Dates: start: 20180831, end: 20180913
  33. WARFARIN [Concomitant]
     Active Substance: WARFARIN
     Dosage: 3.5 MG, QD, AFTER DINNER
     Route: 048
     Dates: start: 20181106, end: 20181113
  34. SULTAMUGIN [Concomitant]
     Dosage: 1 G
     Route: 042
     Dates: start: 20180726, end: 20180726
  35. TRAZENTA [Concomitant]
     Active Substance: LINAGLIPTIN
     Dosage: 5 MILLIGRAM
     Route: 048
     Dates: end: 20180727
  36. FEBURIC [Concomitant]
     Active Substance: FEBUXOSTAT
     Dosage: 20 MG
     Route: 048
     Dates: start: 20181116, end: 20181206
  37. METHYCOBAL [Concomitant]
     Active Substance: METHYLCOBALAMIN
     Dosage: 500 UG, TID, AFTER BREAKFAST, LUNCH AND DINNER
     Route: 048
     Dates: start: 20180803, end: 20181113
  38. MIRCERA [Concomitant]
     Active Substance: METHOXY POLYETHYLENE GLYCOL-EPOETIN BETA
     Dosage: 150 UG
     Route: 058
     Dates: start: 20181025, end: 20181025
  39. BIKEN HA [Concomitant]
     Active Substance: INFLUENZA VIRUS VACCINE
     Dosage: 0.5 ML
     Route: 058
     Dates: start: 20181116, end: 20181116

REACTIONS (1)
  - Aplasia pure red cell [Not Recovered/Not Resolved]

NARRATIVE: CASE EVENT DATE: 20181116
